FAERS Safety Report 5005020-4 (Version None)
Quarter: 2006Q2

REPORT INFORMATION
  Report Type: 
  Country: None (occurrence: None)
  Receive Date: 20060512
  Receipt Date: 20060503
  Transmission Date: 20061013
  Serious: Yes (Other)
  Sender: FDA-Public Use
  Company Number: 2006059756

PATIENT
  Age: 39 Year
  Sex: Male

DRUGS (2)
  1. PHENYTOIN SODIUM [Suspect]
     Indication: ILL-DEFINED DISORDER
     Dosage: 400 MG (1 D), ORAL
     Route: 048
     Dates: start: 19890106, end: 19890210
  2. CARBAMAZEPINE [Concomitant]

REACTIONS (1)
  - HEPATIC FUNCTION ABNORMAL [None]
